FAERS Safety Report 11686888 (Version 2)
Quarter: 2017Q1

REPORT INFORMATION
  Report Type: Report from Study
  Country: US (occurrence: US)
  Receive Date: 20151030
  Receipt Date: 20170116
  Transmission Date: 20170428
  Serious: Yes (Hospitalization)
  Sender: FDA-Public Use
  Company Number: US-B.I. PHARMACEUTICALS,INC./RIDGEFIELD-2015-BI-32848BP

PATIENT
  Age: 81 Year
  Sex: Male

DRUGS (3)
  1. PREDNISONE. [Concomitant]
     Active Substance: PREDNISONE
     Indication: PRODUCT USED FOR UNKNOWN INDICATION
     Route: 065
  2. OFEV [Suspect]
     Active Substance: NINTEDANIB
     Indication: IDIOPATHIC PULMONARY FIBROSIS
     Route: 048
     Dates: start: 20150505
  3. OFEV [Suspect]
     Active Substance: NINTEDANIB
     Indication: IDIOPATHIC INTERSTITIAL PNEUMONIA
     Route: 048
     Dates: start: 20150309, end: 20150407

REACTIONS (5)
  - Diarrhoea [Unknown]
  - Diarrhoea [Recovered/Resolved]
  - Pulmonary thrombosis [Recovered/Resolved]
  - Diarrhoea [Recovered/Resolved]
  - Embolism venous [Recovered/Resolved]

NARRATIVE: CASE EVENT DATE: 20150309
